FAERS Safety Report 9626092 (Version 2)
Quarter: 2013Q4

REPORT INFORMATION
  Report Type: Spontaneous
  Country: US (occurrence: US)
  Receive Date: 20131016
  Receipt Date: 20131016
  Transmission Date: 20140711
  Serious: No
  Sender: FDA-Public Use
  Company Number: US-MYLANLABS-2013S1015104

PATIENT
  Age: 56 Year
  Sex: Female

DRUGS (5)
  1. VALSARTAN AND HYDROCHLOROTHIAZIDE TABLETS [Suspect]
     Indication: BLOOD PRESSURE INCREASED
     Dates: start: 20121201, end: 20130126
  2. METOPROLOL [Concomitant]
     Indication: CARDIAC DISORDER
  3. ATORVASTATIN [Concomitant]
     Indication: CARDIAC DISORDER
  4. CLOPIDOGREL BISULFATE [Concomitant]
     Indication: CARDIAC DISORDER
  5. ASPIRIN [Concomitant]

REACTIONS (2)
  - Drug ineffective [Recovered/Resolved]
  - Blood pressure increased [Recovered/Resolved]
